FAERS Safety Report 12230408 (Version 1)
Quarter: 2016Q2

REPORT INFORMATION
  Report Type: Spontaneous
  Country: US (occurrence: US)
  Receive Date: 20160401
  Receipt Date: 20160401
  Transmission Date: 20160815
  Serious: No
  Sender: FDA-Public Use
  Company Number: US-JNJFOC-20160314444

PATIENT
  Age: 71 Year
  Sex: Female
  Weight: 52.16 kg

DRUGS (4)
  1. PRESERVISION [Suspect]
     Active Substance: MINERALS\VITAMINS
     Indication: MACULAR DEGENERATION
     Route: 048
  2. ASPIRIN. [Concomitant]
     Active Substance: ASPIRIN
     Indication: CEREBROVASCULAR ACCIDENT PROPHYLAXIS
     Route: 048
  3. TRAMADOL HYDROCHLORIDE. [Suspect]
     Active Substance: TRAMADOL HYDROCHLORIDE
     Indication: BACK PAIN
     Route: 048
     Dates: start: 201511, end: 201601
  4. CALCIUM CITRATE [Concomitant]
     Active Substance: CALCIUM CITRATE
     Indication: OSTEOPOROSIS
     Dosage: 1000 IU VITAMIN D3 AND 1,260 MG CALCIUM DAILY. 2 CAPSULES IN??THE MORNING AND EVENING
     Route: 048

REACTIONS (3)
  - Drug ineffective [Unknown]
  - Off label use [Unknown]
  - Inappropriate schedule of drug administration [Unknown]
